FAERS Safety Report 4465330-6 (Version None)
Quarter: 2004Q4

REPORT INFORMATION
  Report Type: 
  Country: None (occurrence: None)
  Receive Date: 20041004
  Receipt Date: 20040928
  Transmission Date: 20050328
  Serious: Yes (Other)
  Sender: FDA-Public Use
  Company Number: GB-MERCK-0409GBR00266

PATIENT
  Age: 59 Year
  Sex: Female
  Weight: 70 kg

DRUGS (3)
  1. ACETAMINOPHEN AND DIHYDROCODEINE BITARTRATE [Concomitant]
     Indication: PAIN
     Route: 048
     Dates: start: 20020430
  2. RAMIPRIL [Concomitant]
     Indication: HYPERTENSION
     Route: 048
     Dates: start: 20040428
  3. VIOXX [Suspect]
     Indication: BURSITIS
     Route: 048
     Dates: start: 20040707, end: 20040729

REACTIONS (1)
  - RASH PRURITIC [None]
